FAERS Safety Report 5238937-6 (Version None)
Quarter: 2007Q1

REPORT INFORMATION
  Report Type: 
  Country: None (occurrence: None)
  Receive Date: 20070215
  Receipt Date: 20070131
  Transmission Date: 20070707
  Serious: Yes (Other)
  Sender: FDA-Public Use
  Company Number: JP-PFIZER INC-2007012011

PATIENT
  Age: 55 Year
  Sex: Male

DRUGS (3)
  1. DETRUSITOL LA [Suspect]
     Route: 048
  2. AVISHOT [Concomitant]
  3. CERCINE [Concomitant]

REACTIONS (1)
  - GYNAECOMASTIA [None]
